FAERS Safety Report 23581752 (Version 3)
Quarter: 2024Q2

REPORT INFORMATION
  Report Type: Report from Study
  Country: DE (occurrence: DE)
  Receive Date: 20240229
  Receipt Date: 20240422
  Transmission Date: 20240716
  Serious: No
  Sender: FDA-Public Use
  Company Number: DE-PFM-2024-01278

PATIENT
  Age: 70 Year
  Sex: Female

DRUGS (27)
  1. ENCORAFENIB [Suspect]
     Active Substance: ENCORAFENIB
     Indication: Malignant melanoma
     Dosage: 450 MG, QD (1/DAY)
     Route: 048
     Dates: start: 20231112, end: 20231114
  2. ENCORAFENIB [Suspect]
     Active Substance: ENCORAFENIB
     Dosage: 450 MG, QD (1/DAY)
     Route: 048
     Dates: start: 20231118, end: 20231123
  3. ENCORAFENIB [Suspect]
     Active Substance: ENCORAFENIB
     Dosage: 450 MG, QD (1/DAY)
     Route: 048
     Dates: start: 20231125, end: 20231204
  4. BINIMETINIB [Suspect]
     Active Substance: BINIMETINIB
     Indication: Malignant melanoma
     Dosage: 45 MG, BID (2/DAY)
     Route: 048
     Dates: start: 20231112, end: 20231114
  5. BINIMETINIB [Suspect]
     Active Substance: BINIMETINIB
     Dosage: 45 MG, BID (2/DAY)
     Route: 048
     Dates: start: 20231118, end: 20231123
  6. BINIMETINIB [Suspect]
     Active Substance: BINIMETINIB
     Dosage: 45 MG, BID (2/DAY)
     Route: 048
     Dates: start: 20231125, end: 20231204
  7. LEVOTHYROXINE SODIUM [Concomitant]
     Active Substance: LEVOTHYROXINE SODIUM
     Indication: Prophylaxis
     Dosage: UNK
     Route: 065
  8. PREDNISOLONE [Concomitant]
     Active Substance: PREDNISOLONE
     Indication: Rheumatoid arthritis
     Dosage: UNK
     Route: 065
     Dates: start: 20231125
  9. PREDNISOLONE [Concomitant]
     Active Substance: PREDNISOLONE
     Indication: Musculoskeletal disorder
     Dosage: 7.5 MG, QD (1/DAY)
     Route: 065
     Dates: start: 20231128
  10. PANTOPRAZOLE SODIUM [Concomitant]
     Active Substance: PANTOPRAZOLE SODIUM
     Indication: Diarrhoea
     Dosage: 40 MG, 1-0-1 4 WEEKS, 40 MG 1-0-0 4 WEEKS; THEN TAPER OFF
     Route: 065
     Dates: start: 20231114
  11. PANTOPRAZOLE SODIUM [Concomitant]
     Active Substance: PANTOPRAZOLE SODIUM
     Indication: Nausea
     Dosage: 40 MG DAILY (1-0-0)
     Route: 065
     Dates: start: 20231124
  12. PANTOPRAZOLE SODIUM [Concomitant]
     Active Substance: PANTOPRAZOLE SODIUM
     Indication: Rheumatoid arthritis
  13. PROPRANOLOL HYDROCHLORIDE [Concomitant]
     Active Substance: PROPRANOLOL HYDROCHLORIDE
     Indication: Diarrhoea
     Dosage: 10 MG 1-1-1
     Route: 065
     Dates: start: 20231114
  14. PROPRANOLOL HYDROCHLORIDE [Concomitant]
     Active Substance: PROPRANOLOL HYDROCHLORIDE
     Indication: Nausea
  15. PANCRELIPASE [Concomitant]
     Active Substance: PANCRELIPASE
     Indication: Diarrhoea
     Dosage: 10,000 I.U. 1-1-1 WITH MEALS
     Route: 065
     Dates: start: 20231114
  16. PANCRELIPASE [Concomitant]
     Active Substance: PANCRELIPASE
     Indication: Nausea
  17. IBUPROFEN [Concomitant]
     Active Substance: IBUPROFEN
     Indication: Diarrhoea
     Dosage: UNK
     Route: 065
     Dates: start: 20231114
  18. IBUPROFEN [Concomitant]
     Active Substance: IBUPROFEN
     Indication: Nausea
  19. IBUPROFEN [Concomitant]
     Active Substance: IBUPROFEN
     Indication: Rheumatoid arthritis
  20. DIMENHYDRINATE [Concomitant]
     Active Substance: DIMENHYDRINATE
     Indication: Rheumatoid arthritis
     Dosage: 62 MG, PRN
     Route: 065
     Dates: start: 20231124
  21. FRAGMIN [Concomitant]
     Active Substance: DALTEPARIN SODIUM
     Indication: Rheumatoid arthritis
     Dosage: UNKNOWN DOSE DAILY (0-0-1)
     Route: 065
     Dates: start: 20231124
  22. METOPROLOL TARTRATE [Concomitant]
     Active Substance: METOPROLOL TARTRATE
     Indication: Rheumatoid arthritis
     Dosage: UNKNOWN DOSE DAILY (1-0-0)
     Route: 065
     Dates: start: 20231124
  23. POTASSIUM CHLORIDE [Concomitant]
     Active Substance: POTASSIUM CHLORIDE
     Indication: Rheumatoid arthritis
     Dosage: 600 MG, TID (3/DAY)
     Route: 065
     Dates: start: 20231127
  24. ZOPICLONE [Concomitant]
     Active Substance: ZOPICLONE
     Indication: Rheumatoid arthritis
     Dosage: 3.75 MG, (0-0-1)
     Route: 065
     Dates: start: 20231127
  25. METAMIZOL [Concomitant]
     Active Substance: METAMIZOLE SODIUM
     Indication: Rheumatoid arthritis
     Dosage: UNK
     Route: 065
  26. CHOLECALCIFEROL [Concomitant]
     Active Substance: CHOLECALCIFEROL
     Indication: Rheumatoid arthritis
     Dosage: UNK
     Route: 065
     Dates: start: 20231128
  27. IBUPROFEN [Concomitant]
     Active Substance: IBUPROFEN
     Indication: Rheumatoid arthritis
     Dosage: UNK
     Route: 065
     Dates: start: 20231128, end: 20231203

REACTIONS (1)
  - General physical health deterioration [Recovered/Resolved]

NARRATIVE: CASE EVENT DATE: 20231205
